FAERS Safety Report 7202176-X (Version None)
Quarter: 2010Q4

REPORT INFORMATION
  Report Type: 
  Country: None (occurrence: None)
  Receive Date: 20101229
  Receipt Date: 20101216
  Transmission Date: 20110411
  Serious: Yes (Hospitalization, Other)
  Sender: FDA-Public Use
  Company Number: PHHY2010FR86100

PATIENT
  Sex: Female

DRUGS (5)
  1. VOLTAREN [Suspect]
     Dosage: 1 DF, TID
     Route: 048
     Dates: start: 20101012
  2. ACTISKENAN [Suspect]
     Dosage: UNK
     Dates: start: 20101012, end: 20101013
  3. ESOMEPRAZOLE [Suspect]
     Dosage: 40 MG, QD
     Dates: start: 20101012, end: 20101013
  4. PRIMPERAN TAB [Suspect]
     Dosage: 10 MG, QID
     Dates: start: 20101010, end: 20101012
  5. PERFALGAN [Suspect]
     Dosage: 1 G, QID
     Dates: start: 20101010, end: 20101014

REACTIONS (3)
  - ERYTHEMA [None]
  - RASH MACULO-PAPULAR [None]
  - VIRAL INFECTION [None]
